FAERS Safety Report 13449562 (Version 1)
Quarter: 2017Q2

REPORT INFORMATION
  Report Type: Spontaneous
  Country: CH (occurrence: CH)
  Receive Date: 20170417
  Receipt Date: 20170417
  Transmission Date: 20170830
  Serious: Yes (Hospitalization)
  Sender: FDA-Public Use
  Company Number: PHHY2017CH052134

PATIENT
  Age: 81 Year
  Sex: Male

DRUGS (7)
  1. DISTRANEURIN [Suspect]
     Active Substance: CLOMETHIAZOLE
     Dosage: 192 MG, QID
     Route: 048
     Dates: start: 20170317, end: 20170324
  2. DISTRANEURIN [Suspect]
     Active Substance: CLOMETHIAZOLE
     Indication: NEUROPSYCHIATRIC SYMPTOMS
     Route: 048
     Dates: start: 20170124, end: 20170222
  3. SALVIA OFFICINALIS EXTRACT [Suspect]
     Active Substance: HERBALS
     Indication: SALIVARY HYPERSECRETION
     Route: 048
     Dates: start: 20170209, end: 20170222
  4. TAMSULOSIN SANDOZ [Suspect]
     Active Substance: TAMSULOSIN
     Indication: BENIGN PROSTATIC HYPERPLASIA
     Dosage: 400 UG, QD
     Route: 048
     Dates: start: 20170317, end: 20170322
  5. IMOVANE [Suspect]
     Active Substance: ZOPICLONE
     Indication: NEUROPSYCHIATRIC SYMPTOMS
     Route: 048
     Dates: start: 20170127, end: 20170222
  6. TEBOKAN [Suspect]
     Active Substance: GINKGO
     Indication: MIXED DEMENTIA
     Route: 048
     Dates: end: 20170222
  7. HALDOL [Suspect]
     Active Substance: HALOPERIDOL
     Indication: NEUROPSYCHIATRIC SYMPTOMS
     Dosage: 2 MG, BID
     Route: 048
     Dates: start: 20170124, end: 20170222

REACTIONS (3)
  - Cholestatic liver injury [Recovering/Resolving]
  - Lipase increased [Recovering/Resolving]
  - Jaundice cholestatic [Recovering/Resolving]

NARRATIVE: CASE EVENT DATE: 20170222
